FAERS Safety Report 5024283-2 (Version None)
Quarter: 2006Q2

REPORT INFORMATION
  Report Type: 
  Country: None (occurrence: None)
  Receive Date: 20060607
  Receipt Date: 20060524
  Transmission Date: 20061013
  Serious: Yes (Other)
  Sender: FDA-Public Use
  Company Number: 2005172947

PATIENT
  Sex: Female

DRUGS (4)
  1. DILANTIN KAPSEAL [Suspect]
     Dosage: 225 MG (1 D); ORAL
     Route: 048
     Dates: end: 20041201
  2. DEPAKENE [Suspect]
     Indication: ILL-DEFINED DISORDER
     Dosage: ORAL
     Route: 048
     Dates: start: 19970101
  3. VITAMINS [Concomitant]
  4. FRISIUM (CLOBAZAM) [Concomitant]

REACTIONS (13)
  - ADVERSE EVENT [None]
  - ALOPECIA [None]
  - BLOOD ALKALINE PHOSPHATASE INCREASED [None]
  - GAMMA-GLUTAMYLTRANSFERASE DECREASED [None]
  - GINGIVAL BLEEDING [None]
  - GINGIVAL HYPERTROPHY [None]
  - HEPATIC ENZYME INCREASED [None]
  - HERNIA [None]
  - LYMPHADENOPATHY [None]
  - LYMPHOID TISSUE HYPERPLASIA [None]
  - LYMPHOMA [None]
  - SPLENIC LESION [None]
  - SPLENOMEGALY [None]
